FAERS Safety Report 18967356 (Version 1)
Quarter: 2021Q1

REPORT INFORMATION
  Report Type: Spontaneous
  Country: TR (occurrence: TR)
  Receive Date: 20210303
  Receipt Date: 20210303
  Transmission Date: 20210420
  Serious: No
  Sender: FDA-Public Use
  Company Number: TR-LUPIN PHARMACEUTICALS INC.-2021-02523

PATIENT
  Age: 29 Year
  Sex: Male

DRUGS (5)
  1. BETAMETHASONE. [Suspect]
     Active Substance: BETAMETHASONE
     Indication: BACK PAIN
     Dosage: 6 MILLIGRAM, UNK
     Route: 008
  2. METHYLPREDNISOLONE. [Suspect]
     Active Substance: METHYLPREDNISOLONE
     Indication: PAIN IN EXTREMITY
  3. BETAMETHASONE. [Suspect]
     Active Substance: BETAMETHASONE
     Indication: BACK PAIN
  4. METHYLPREDNISOLONE. [Suspect]
     Active Substance: METHYLPREDNISOLONE
     Indication: BACK PAIN
     Dosage: 40 MILLIGRAM, UNK
     Route: 030
  5. PRILOCAINE [Concomitant]
     Active Substance: PRILOCAINE
     Indication: LOCAL ANAESTHESIA
     Dosage: 2 MILLILITER, UNK
     Route: 008

REACTIONS (1)
  - Hiccups [Recovered/Resolved]
